FAERS Safety Report 9335028 (Version 2)
Quarter: 2013Q4

REPORT INFORMATION
  Report Type: Spontaneous
  Country: US (occurrence: US)
  Receive Date: 20130606
  Receipt Date: 20131008
  Transmission Date: 20140711
  Serious: No
  Sender: FDA-Public Use
  Company Number: US-AMGEN-USASP2013036345

PATIENT
  Age: 68 Year
  Sex: Female
  Weight: 68.48 kg

DRUGS (8)
  1. PROLIA [Suspect]
     Indication: OSTEOPOROSIS POSTMENOPAUSAL
     Dosage: 60 MG, Q6MO
     Route: 058
     Dates: start: 20120816
  2. OCUVITE                            /01053801/ [Concomitant]
     Route: 048
  3. CALCIUM WITH VITAMIN D             /00944201/ [Concomitant]
     Indication: OSTEOPOROSIS
     Dosage: 500MG/400UNITS
     Route: 048
     Dates: start: 20111212
  4. CLONAZEPAM [Concomitant]
     Dosage: 1 MG, UNK
     Route: 048
     Dates: start: 20111212
  5. CITALOPRAM [Concomitant]
     Indication: ANXIETY
     Dosage: 20 MG, QD
     Route: 048
     Dates: start: 20111212
  6. SIMVASTATIN [Concomitant]
     Indication: BLOOD CHOLESTEROL
     Dosage: 20 MG, QD
     Route: 048
     Dates: start: 20111212
  7. DERMOTIC [Concomitant]
     Dosage: 1.01%-3GHS
     Dates: start: 20130305
  8. NASONEX [Concomitant]
     Dosage: 2 SPRAY
     Dates: start: 20130504

REACTIONS (1)
  - Gingival recession [Not Recovered/Not Resolved]
